FAERS Safety Report 25248450 (Version 1)
Quarter: 2025Q2

REPORT INFORMATION
  Report Type: Spontaneous
  Country: US (occurrence: US)
  Receive Date: 20250429
  Receipt Date: 20250429
  Transmission Date: 20250717
  Serious: No
  Sender: TARO
  Company Number: US-TARO PHARMACEUTICALS USA INC.-2024TAR01699

PATIENT

DRUGS (1)
  1. FLUOROURACIL [Suspect]
     Active Substance: FLUOROURACIL
     Indication: Precancerous condition
     Dosage: UNK,MAYBE ABOUT 2 PEA-SIZED AMOUNTS, FOREHEAD, AND MAYBE DOWN A LITTLE BIT TO THE SIDES
     Route: 061
     Dates: start: 202409

REACTIONS (2)
  - Erythema [Not Recovered/Not Resolved]
  - Product use issue [Unknown]
